FAERS Safety Report 9423046 (Version 2)
Quarter: 2013Q3

REPORT INFORMATION
  Report Type: Spontaneous
  Country: US (occurrence: US)
  Receive Date: 20130726
  Receipt Date: 20130819
  Transmission Date: 20140515
  Serious: Yes (Hospitalization)
  Sender: FDA-Public Use
  Company Number: US-GLAXOSMITHKLINE-A1035027A

PATIENT
  Age: 66 Year
  Sex: Female

DRUGS (1)
  1. ADVAIR [Suspect]
     Indication: PRODUCT USED FOR UNKNOWN INDICATION
     Route: 065
     Dates: start: 20130419

REACTIONS (4)
  - Cellulitis [Recovering/Resolving]
  - Urinary tract infection [Recovering/Resolving]
  - Erythema [Recovering/Resolving]
  - Anxiety [Recovering/Resolving]
